FAERS Safety Report 12594806 (Version 1)
Quarter: 2016Q3

REPORT INFORMATION
  Report Type: Spontaneous
  Country: US (occurrence: US)
  Receive Date: 20160726
  Receipt Date: 20160726
  Transmission Date: 20161109
  Serious: Yes (Other)
  Sender: FDA-Public Use
  Company Number: US-NOVOPROD-502013

PATIENT
  Age: 57 Year
  Sex: Female

DRUGS (1)
  1. VICTOZA [Suspect]
     Active Substance: LIRAGLUTIDE
     Indication: PRODUCT USED FOR UNKNOWN INDICATION
     Dosage: UNK UNK, SINGLE
     Route: 058
     Dates: start: 201505, end: 201505

REACTIONS (2)
  - Cerebrovascular accident [Unknown]
  - Tremor [Unknown]

NARRATIVE: CASE EVENT DATE: 201505
